FAERS Safety Report 25252769 (Version 1)
Quarter: 2025Q2

REPORT INFORMATION
  Report Type: Report from Study
  Country: US (occurrence: US)
  Receive Date: 20250429
  Receipt Date: 20250429
  Transmission Date: 20250717
  Serious: No
  Sender: ACADIA PHARMACEUTICALS
  Company Number: US-ACADIA PHARMACEUTICALS INC.-ACA-2025-PIM-004773

PATIENT
  Sex: Male

DRUGS (8)
  1. NUPLAZID [Suspect]
     Active Substance: PIMAVANSERIN TARTRATE
     Indication: Parkinson^s disease
     Dosage: 34 MILLIGRAM, QD (TAKE 1 CAPSULE BY MOUTH EVERY NIGHT AT BED TIME)
     Route: 048
     Dates: start: 20220329
  2. AZILECT [Concomitant]
     Active Substance: RASAGILINE MESYLATE
  3. CARBIDOPA AND LEVODOPA [Concomitant]
     Active Substance: CARBIDOPA\LEVODOPA
  4. CLOBETASOL [Concomitant]
     Active Substance: CLOBETASOL
  5. FISH OIL [Concomitant]
     Active Substance: FISH OIL
  6. GOCOVRI [Concomitant]
     Active Substance: AMANTADINE
  7. IRON [Concomitant]
     Active Substance: IRON
     Dosage: UNK, QD
  8. VITAMIN D3 [Concomitant]
     Active Substance: CHOLECALCIFEROL

REACTIONS (2)
  - Seborrhoea [Unknown]
  - Feeling hot [Unknown]
